FAERS Safety Report 24448947 (Version 2)
Quarter: 2024Q4

REPORT INFORMATION
  Report Type: Spontaneous
  Country: ES (occurrence: ES)
  Receive Date: 20241017
  Receipt Date: 20241112
  Transmission Date: 20250115
  Serious: Yes (Life-Threatening, Hospitalization, Other)
  Sender: ACCORD
  Company Number: ES-Accord-451006

PATIENT
  Age: 63 Year
  Sex: Female
  Weight: 61 kg

DRUGS (13)
  1. CARBOPLATIN [Suspect]
     Active Substance: CARBOPLATIN
     Indication: Small cell lung cancer limited stage
     Dosage: Q3W,  IV DRIP
     Dates: start: 20240717, end: 20240913
  2. ETOPOSIDE [Suspect]
     Active Substance: ETOPOSIDE
     Indication: Small cell lung cancer limited stage
     Dosage: Q3W, ONCE DAILY (QD), FROM DAY 1 TO DAY 3 (D1-D3) OF EVERY CYCLE
     Dates: start: 20240717, end: 20240913
  3. AMINO ACIDS, SOURCE UNSPECIFIED [Concomitant]
     Active Substance: AMINO ACIDS, SOURCE UNSPECIFIED
     Dosage: 10G, THREE TIMES DAILY
     Route: 048
     Dates: start: 20240903
  4. ASPIRIN [Concomitant]
     Active Substance: ASPIRIN
     Dosage: 100MG, QD
     Route: 048
     Dates: start: 20211102
  5. EBASTINE [Concomitant]
     Active Substance: EBASTINE
     Dosage: 20MG, QD
     Route: 048
     Dates: start: 20240903
  6. OMEPRAZOLE [Concomitant]
     Active Substance: OMEPRAZOLE
     Dosage: 20MG, QD
     Route: 048
     Dates: start: 20240903
  7. LEVOTHYROXINE SODIUM [Concomitant]
     Active Substance: LEVOTHYROXINE SODIUM
     Dosage: 50MCG, QD
     Route: 048
     Dates: start: 20240910
  8. FOSTER [Concomitant]
     Active Substance: BECLOMETHASONE\FORMOTEROL
     Dosage: 100/6MCG, TID
     Route: 045
     Dates: start: 20201124
  9. ISOSORBIDE MONONITRATE [Concomitant]
     Active Substance: ISOSORBIDE MONONITRATE
     Dosage: 50MG, QD
     Route: 048
     Dates: start: 20240126
  10. MOTILIUM [Concomitant]
     Active Substance: DOMPERIDONE
     Dosage: 10MG, TID
     Route: 048
     Dates: start: 20240903
  11. Mst [Concomitant]
     Dosage: 100MG, TWICE DAILY (BID)
     Route: 048
     Dates: start: 20240831
  12. NITROGLYCERIN [Concomitant]
     Active Substance: NITROGLYCERIN
     Dosage: 0.4MG, EVERY 7 DAYS
     Route: 060
     Dates: start: 20240219
  13. ONDANSETRON [Concomitant]
     Active Substance: ONDANSETRON
     Dosage: 8MG, TID
     Route: 048
     Dates: start: 20240910

REACTIONS (6)
  - Oesophagitis [Recovered/Resolved]
  - Deep vein thrombosis [Unknown]
  - Neutropenia [Unknown]
  - Thrombocytopenia [Unknown]
  - Anaemia [Unknown]
  - Toxicity to various agents [Unknown]

NARRATIVE: CASE EVENT DATE: 20240923
